FAERS Safety Report 6765088-1 (Version None)
Quarter: 2010Q2

REPORT INFORMATION
  Report Type: 
  Country: None (occurrence: None)
  Receive Date: 20100609
  Receipt Date: 20100609
  Transmission Date: 20101027
  Serious: Yes (Hospitalization)
  Sender: FDA-Public Use
  Company Number: None

PATIENT
  Sex: Male
  Weight: 69.8539 kg

DRUGS (2)
  1. CETUXIMAB [Suspect]
     Indication: BLADDER CANCER
     Dosage: 250 MG/M2 WEEKLY IV
     Route: 042
     Dates: start: 20091125, end: 20100428
  2. PACLITAXEL [Suspect]
     Indication: BLADDER CANCER
     Dosage: 80 MG/M2 WEEKLY IV
     Route: 042
     Dates: start: 20091125, end: 20100428

REACTIONS (11)
  - BLOOD PRESSURE INCREASED [None]
  - BLOOD PRESSURE ORTHOSTATIC [None]
  - CEREBRAL ATROPHY [None]
  - CEREBRAL ISCHAEMIA [None]
  - CONFUSIONAL STATE [None]
  - DYSKINESIA [None]
  - FALL [None]
  - HAEMOGLOBIN DECREASED [None]
  - MALIGNANT NEOPLASM PROGRESSION [None]
  - QUALITY OF LIFE DECREASED [None]
  - TREMOR [None]
